FAERS Safety Report 23700282 (Version 1)
Quarter: 2024Q2

REPORT INFORMATION
  Report Type: Spontaneous
  Country: US (occurrence: US)
  Receive Date: 20240403
  Receipt Date: 20240403
  Transmission Date: 20240716
  Serious: Yes (Other)
  Sender: FDA-Public Use
  Company Number: US-SANDOZ-SDZ2024US034184

PATIENT
  Age: 73 Year
  Sex: Male

DRUGS (2)
  1. HYDROCORTISONE [Suspect]
     Active Substance: HYDROCORTISONE
     Indication: Addison^s disease
     Dosage: UNK
     Route: 065
  2. ITRACONAZOLE [Concomitant]
     Active Substance: ITRACONAZOLE
     Indication: Product used for unknown indication
     Dosage: 200 MG, TID (3 TIMES DAILY FOR 3DAYS, THEN TWICE DAILY)
     Route: 065

REACTIONS (2)
  - Infection reactivation [Unknown]
  - Histoplasmosis [Unknown]
